FAERS Safety Report 21011017 (Version 16)
Quarter: 2023Q4

REPORT INFORMATION
  Report Type: Spontaneous
  Country: US (occurrence: US)
  Receive Date: 20220627
  Receipt Date: 20231201
  Transmission Date: 20240110
  Serious: Yes (Other)
  Sender: FDA-Public Use
  Company Number: US-PFIZER INC-202101466265

PATIENT
  Age: 74 Year
  Sex: Male
  Weight: 58.957 kg

DRUGS (4)
  1. RETACRIT [Suspect]
     Active Substance: EPOETIN ALFA-EPBX
     Indication: Chronic kidney disease
     Dosage: 10000 IU, 2X/WEEK
  2. RETACRIT [Suspect]
     Active Substance: EPOETIN ALFA-EPBX
     Indication: Anaemia
     Dosage: 1000 IU
     Dates: start: 20211018
  3. RETACRIT [Suspect]
     Active Substance: EPOETIN ALFA-EPBX
     Dosage: 10000 IU
     Dates: start: 20221102
  4. RETACRIT [Suspect]
     Active Substance: EPOETIN ALFA-EPBX
     Dosage: 1000 IU/ML
     Dates: start: 20221102

REACTIONS (5)
  - Dialysis [Unknown]
  - Renal impairment [Unknown]
  - Chemotherapy [Unknown]
  - Fatigue [Unknown]
  - Herpes zoster [Recovering/Resolving]
